FAERS Safety Report 14498027 (Version 1)
Quarter: 2018Q1

REPORT INFORMATION
  Report Type: Spontaneous
  Country: US (occurrence: US)
  Receive Date: 20180206
  Receipt Date: 20180206
  Transmission Date: 20180509
  Serious: Yes (Hospitalization, Other)
  Sender: FDA-Public Use
  Company Number: None

PATIENT

DRUGS (1)
  1. DABIGATRAN [Suspect]
     Active Substance: DABIGATRAN

REACTIONS (5)
  - Fall [None]
  - Subdural haemorrhage [None]
  - Head injury [None]
  - Haemorrhage [None]
  - Tongue biting [None]
